FAERS Safety Report 5470684-8 (Version None)
Quarter: 2007Q3

REPORT INFORMATION
  Report Type: 
  Country: None (occurrence: None)
  Receive Date: 20070928
  Receipt Date: 20070920
  Transmission Date: 20080115
  Serious: Yes (Other)
  Sender: FDA-Public Use
  Company Number: PHBS2007BR15699

PATIENT
  Age: 55 Year
  Sex: Female
  Weight: 63 kg

DRUGS (5)
  1. URSACOL [Concomitant]
     Indication: BILIARY CIRRHOSIS PRIMARY
     Dosage: 6 DF/DAY
     Route: 048
  2. COMBIPATCH [Suspect]
     Indication: MENOPAUSE
     Dosage: HALF PATCH ON MONDAY, HALF PATCH ON THURSDAY
     Route: 062
  3. METFORMIN [Concomitant]
     Indication: BLOOD GLUCOSE INCREASED
     Dosage: 850 MG, QD
     Route: 048
  4. SYNTHROID [Concomitant]
     Dosage: 88 MG, QD
     Route: 048
  5. PROPRANOLOL [Concomitant]
     Indication: VEIN DISORDER
     Dosage: 80 MG/DAY
     Route: 048

REACTIONS (3)
  - BLOOD GLUCOSE INCREASED [None]
  - THYROIDECTOMY [None]
  - VEIN DISORDER [None]
